FAERS Safety Report 14256499 (Version 10)
Quarter: 2021Q1

REPORT INFORMATION
  Report Type: Spontaneous
  Country: US (occurrence: US)
  Receive Date: 20171206
  Receipt Date: 20210310
  Transmission Date: 20210419
  Serious: Yes (Other)
  Sender: FDA-Public Use
  Company Number: US-PFIZER INC-2017522029

PATIENT
  Age: 55 Year
  Sex: Female
  Weight: 136 kg

DRUGS (3)
  1. LYRICA [Suspect]
     Active Substance: PREGABALIN
     Indication: PAIN
     Dosage: 200 MG, 3X/DAY
     Route: 048
  2. LYRICA [Suspect]
     Active Substance: PREGABALIN
     Dosage: 50?100MG, TWICE A DAY
  3. LYRICA [Suspect]
     Active Substance: PREGABALIN
     Dosage: 1 DF, DAILY,ONE PILL A DAY

REACTIONS (9)
  - Expired product administered [Unknown]
  - Intentional product use issue [Unknown]
  - Restless legs syndrome [Unknown]
  - Immunodeficiency [Unknown]
  - Disease recurrence [Unknown]
  - Stress [Unknown]
  - Pain [Unknown]
  - Visual impairment [Unknown]
  - Autoimmune disorder [Unknown]

NARRATIVE: CASE EVENT DATE: 201704
